FAERS Safety Report 18628994 (Version 1)
Quarter: 2020Q4

REPORT INFORMATION
  Report Type: Spontaneous
  Country: US (occurrence: US)
  Receive Date: 20201217
  Receipt Date: 20201217
  Transmission Date: 20210114
  Serious: No
  Sender: FDA-Public Use
  Company Number: US-009507513-2012USA006440

PATIENT
  Sex: Female

DRUGS (1)
  1. NEXPLANON [Suspect]
     Active Substance: ETONOGESTREL
     Indication: CONTRACEPTION
     Dosage: 1 DOSAGE FORM (DOSE REPORTED AS 68 MILLIGRAM), FREQUENCY REPORTED AS ONCE
     Route: 059
     Dates: start: 202003, end: 20200814

REACTIONS (3)
  - Libido decreased [Unknown]
  - Emotional disorder [Unknown]
  - Weight loss poor [Unknown]

NARRATIVE: CASE EVENT DATE: 2020
